FAERS Safety Report 7279399-7 (Version None)
Quarter: 2011Q1

REPORT INFORMATION
  Report Type: 
  Country: None (occurrence: None)
  Receive Date: 20110208
  Receipt Date: 20110128
  Transmission Date: 20110831
  Serious: Yes (Hospitalization)
  Sender: FDA-Public Use
  Company Number: US-BIOGENIDEC-2010BI043261

PATIENT
  Age: 56 Year
  Sex: Female

DRUGS (1)
  1. TYSABRI [Suspect]
     Indication: MULTIPLE SCLEROSIS
     Route: 042
     Dates: start: 20061012

REACTIONS (7)
  - OSTECTOMY [None]
  - TOE AMPUTATION [None]
  - CLOSTRIDIAL INFECTION [None]
  - WOUND [None]
  - OSTEOMYELITIS [None]
  - LOCALISED INFECTION [None]
  - EMOTIONAL DISTRESS [None]
